FAERS Safety Report 7063814-8 (Version None)
Quarter: 2010Q4

REPORT INFORMATION
  Report Type: 
  Country: None (occurrence: None)
  Receive Date: 20101026
  Receipt Date: 20100903
  Transmission Date: 20110411
  Serious: No
  Sender: FDA-Public Use
  Company Number: US-ABBOTT-10P-163-0668312-00

PATIENT
  Sex: Female

DRUGS (4)
  1. LUPRON DEPOT [Suspect]
     Indication: ANAEMIA
  2. LUPRON DEPOT [Suspect]
     Indication: VAGINAL HAEMORRHAGE
  3. LUPRON DEPOT [Suspect]
     Indication: UTERINE LEIOMYOMA
  4. IRON [Concomitant]
     Indication: HAEMOGLOBIN DECREASED

REACTIONS (7)
  - ANXIETY [None]
  - DECREASED APPETITE [None]
  - DIZZINESS [None]
  - EMOTIONAL DISTRESS [None]
  - FEELING COLD [None]
  - HOT FLUSH [None]
  - UNEVALUABLE EVENT [None]
